FAERS Safety Report 25151902 (Version 1)
Quarter: 2025Q2

REPORT INFORMATION
  Report Type: Report from Study
  Country: FR (occurrence: FR)
  Receive Date: 20250402
  Receipt Date: 20250402
  Transmission Date: 20250717
  Serious: Yes (Hospitalization)
  Sender: PFIZER
  Company Number: FR-PFM-2025-01596

PATIENT
  Age: 48 Year
  Sex: Female
  Weight: 52 kg

DRUGS (18)
  1. BINIMETINIB [Suspect]
     Active Substance: BINIMETINIB
     Indication: Metastatic malignant melanoma
     Dosage: 90 MG PER DAY
     Route: 065
     Dates: start: 20240717, end: 20240912
  2. BINIMETINIB [Suspect]
     Active Substance: BINIMETINIB
     Route: 065
     Dates: start: 20240915
  3. ENCORAFENIB [Suspect]
     Active Substance: ENCORAFENIB
     Indication: Metastatic malignant melanoma
     Dosage: 450 MG PER DAY
     Route: 065
     Dates: start: 20240717, end: 20240912
  4. ENCORAFENIB [Suspect]
     Active Substance: ENCORAFENIB
     Dosage: 450 MG PER DAY
     Route: 065
     Dates: start: 20240915
  5. FOLIC ACID [Concomitant]
     Active Substance: FOLIC ACID
     Indication: Prophylaxis
     Dosage: 5 MG PER DAY
     Route: 065
     Dates: start: 20240723
  6. ALGINIC ACID\ALUMINUM HYDROXIDE [Concomitant]
     Active Substance: ALGINIC ACID\ALUMINUM HYDROXIDE
     Indication: Gastrooesophageal reflux disease
     Route: 065
     Dates: start: 20240725
  7. DELAMANID [Concomitant]
     Active Substance: DELAMANID
     Indication: Pneumonia
     Dosage: 100 MG, BID (2/DAY)
     Route: 065
     Dates: start: 20240725
  8. DESLORATADINE [Concomitant]
     Active Substance: DESLORATADINE
     Indication: Pneumonia
     Dosage: 5 MG PER DAY
     Route: 065
     Dates: start: 20240728
  9. LANSOPRAZOLE [Concomitant]
     Active Substance: LANSOPRAZOLE
     Indication: Gastrooesophageal reflux disease
     Dosage: 15 MG PER DAY
     Route: 065
     Dates: start: 20240725
  10. MAGNESIUM CARBONATE [Concomitant]
     Active Substance: MAGNESIUM CARBONATE
     Indication: Hypomagnesaemia
     Dosage: 2.5 G, BID (2/DAY)
     Route: 065
     Dates: start: 20240728
  11. MOXIFLOXACIN [Concomitant]
     Active Substance: MOXIFLOXACIN
     Indication: Pneumonia
     Dosage: 400 MG PER DAY
     Route: 065
     Dates: start: 20240725
  12. ACETAMINOPHEN [Concomitant]
     Active Substance: ACETAMINOPHEN
     Indication: Pain
     Route: 065
     Dates: start: 20240720
  13. POTASSIUM CHLORIDE [Concomitant]
     Active Substance: POTASSIUM CHLORIDE
     Indication: Hypokalaemia
     Dosage: 600 MG PER DAY
     Route: 065
     Dates: start: 20240722
  14. PREDNISONE [Concomitant]
     Active Substance: PREDNISONE
     Indication: Pneumonia
     Dosage: 40 MG PER DAY
     Route: 065
     Dates: start: 20240728
  15. SIRTURO [Concomitant]
     Active Substance: BEDAQUILINE FUMARATE
     Indication: Pneumonia
     Dosage: 400 MG PER DAY
     Route: 065
     Dates: start: 20240725
  16. LINEZOLID [Concomitant]
     Active Substance: LINEZOLID
     Indication: Pneumonia
     Dosage: 600 MG PER DAY
     Route: 065
     Dates: start: 20240725
  17. PIPERACILLIN SODIUM [Concomitant]
     Active Substance: PIPERACILLIN SODIUM
     Indication: Febrile neutropenia
     Dosage: 4 G, TID (3/DAY)
     Route: 065
     Dates: start: 20240912
  18. TAZOBACTAM [Concomitant]
     Active Substance: TAZOBACTAM
     Indication: Febrile neutropenia
     Dosage: 500 MG, TID (3/DAY)
     Route: 065
     Dates: start: 20240912

REACTIONS (1)
  - Acute kidney injury [Not Recovered/Not Resolved]

NARRATIVE: CASE EVENT DATE: 20250204
